FAERS Safety Report 12766630 (Version 1)
Quarter: 2016Q3

REPORT INFORMATION
  Report Type: Report from Study
  Country: IT (occurrence: IT)
  Receive Date: 20160921
  Receipt Date: 20160921
  Transmission Date: 20161109
  Serious: Yes (Hospitalization)
  Sender: FDA-Public Use
  Company Number: PHHO2016IT012916

PATIENT
  Age: 53 Year
  Sex: Female
  Weight: 75 kg

DRUGS (9)
  1. PLACEBO [Suspect]
     Active Substance: UNSPECIFIED INGREDIENT
     Dosage: CODE NOT BROKEN
     Route: 042
     Dates: start: 20160725, end: 20160725
  2. TRAMETINIB [Suspect]
     Active Substance: TRAMETINIB
     Dosage: 2 MG (TABLET), QD
     Route: 048
     Dates: start: 20160705, end: 20160724
  3. DABRAFENIB [Suspect]
     Active Substance: DABRAFENIB
     Dosage: 150 MG (CAPSULE), BID
     Route: 048
     Dates: start: 20160705, end: 20160724
  4. LEVETIRACETAM. [Concomitant]
     Active Substance: LEVETIRACETAM
     Indication: PRODUCT USED FOR UNKNOWN INDICATION
     Dosage: 1000 MG, UNK
     Route: 048
     Dates: start: 20160608
  5. LORAZEPAM. [Concomitant]
     Active Substance: LORAZEPAM
     Indication: PRODUCT USED FOR UNKNOWN INDICATION
     Dosage: 500 MG, UNK
     Route: 048
     Dates: start: 20160608
  6. PLACEBO [Suspect]
     Active Substance: UNSPECIFIED INGREDIENT
     Indication: MALIGNANT MELANOMA
     Dosage: CODE NOT BROKEN
     Route: 042
     Dates: start: 20160608, end: 20160704
  7. TRAMETINIB [Suspect]
     Active Substance: TRAMETINIB
     Indication: MALIGNANT MELANOMA
     Dosage: 2 MG (TABLET), QD
     Route: 048
     Dates: start: 20160608, end: 20160704
  8. PANTOPRAZOLE [Concomitant]
     Active Substance: PANTOPRAZOLE SODIUM
     Indication: PRODUCT USED FOR UNKNOWN INDICATION
     Dosage: 20 MG, UNK
     Route: 048
     Dates: start: 20160608
  9. DABRAFENIB [Suspect]
     Active Substance: DABRAFENIB
     Indication: MALIGNANT MELANOMA
     Dosage: 150 MG (CAPSULE), BID
     Route: 048
     Dates: start: 20160608, end: 20160704

REACTIONS (1)
  - Metastases to meninges [Not Recovered/Not Resolved]

NARRATIVE: CASE EVENT DATE: 20160828
